FAERS Safety Report 12436942 (Version 2)
Quarter: 2016Q2

REPORT INFORMATION
  Report Type: Spontaneous
  Country: CN (occurrence: CN)
  Receive Date: 20160606
  Receipt Date: 20160609
  Transmission Date: 20160815
  Serious: Yes (Disabling)
  Sender: FDA-Public Use
  Company Number: PHHY2016CN075650

PATIENT
  Age: 7 Year
  Sex: Male

DRUGS (1)
  1. TRILEPTAL [Suspect]
     Active Substance: OXCARBAZEPINE
     Indication: PARTIAL SEIZURES
     Dosage: 600 MG, BID
     Route: 048

REACTIONS (3)
  - Photophobia [Unknown]
  - Blindness [Recovering/Resolving]
  - Vision blurred [Unknown]
